FAERS Safety Report 7243721-8 (Version None)
Quarter: 2011Q1

REPORT INFORMATION
  Report Type: 
  Country: None (occurrence: None)
  Receive Date: 20110125
  Receipt Date: 20110123
  Transmission Date: 20110831
  Serious: No
  Sender: FDA-Public Use
  Company Number: US-PFIZER INC-2011016197

PATIENT
  Sex: Female
  Weight: 51.247 kg

DRUGS (3)
  1. ADVIL [Suspect]
     Indication: MYALGIA
     Dosage: UNK
     Route: 048
     Dates: start: 20110123, end: 20110123
  2. CRESTOR [Concomitant]
     Indication: BLOOD CHOLESTEROL INCREASED
     Dosage: 10 MG, 1X/DAY
     Route: 048
  3. ALEVE [Concomitant]
     Indication: MYALGIA
     Dosage: UNK
     Route: 048
     Dates: end: 20110122

REACTIONS (2)
  - RASH [None]
  - CHROMATURIA [None]
